FAERS Safety Report 10497512 (Version 1)
Quarter: 2014Q4

REPORT INFORMATION
  Report Type: Spontaneous
  Country: US (occurrence: None)
  Receive Date: 20141002
  Receipt Date: 20141002
  Transmission Date: 20150528
  Serious: Yes (Other)
  Sender: FDA-Public Use
  Company Number: 001808337A

PATIENT
  Age: 30 Year
  Sex: Female

DRUGS (2)
  1. MEANINGFUL BEAUTY DAY CREAM SPF 20 [Suspect]
     Active Substance: AVOBENZONE\OCTINOXATE\OCTISALATE\OXYBENZONE
     Dosage: TWICE DAILY DERMAL
     Dates: start: 20130207, end: 20140808
  2. MEANINGFUL BEAUTY CINDY CRAWFORD SKIN BRIGHTENING DECOLLETE AND NECK TREATMENT SPF 15 [Suspect]
     Active Substance: AVOBENZONE\OCTINOXATE\OCTISALATE\OXYBENZONE
     Dosage: TWICE DAILY DERMAL
     Dates: start: 20130207, end: 20140808

REACTIONS (6)
  - Burning sensation [None]
  - Urticaria [None]
  - Throat tightness [None]
  - White blood cell count increased [None]
  - Weight increased [None]
  - Pruritus [None]

NARRATIVE: CASE EVENT DATE: 201302
